FAERS Safety Report 5992923-7 (Version None)
Quarter: 2008Q4

REPORT INFORMATION
  Report Type: 
  Country: None (occurrence: None)
  Receive Date: 20081210
  Receipt Date: 20081126
  Transmission Date: 20090506
  Serious: Yes (Other)
  Sender: FDA-Public Use
  Company Number: CIP08002567

PATIENT
  Age: 50 Year
  Sex: Female

DRUGS (1)
  1. ACTONEL [Suspect]
     Indication: OSTEOPOROSIS PROPHYLAXIS
     Dosage: 150 MG, TOOK ONE DOSE, ORAL
     Route: 048
     Dates: start: 20081123, end: 20081123

REACTIONS (3)
  - BONE PAIN [None]
  - MYALGIA [None]
  - PARALYSIS [None]
